FAERS Safety Report 8133896-0 (Version None)
Quarter: 2012Q1

REPORT INFORMATION
  Report Type: 
  Country: None (occurrence: None)
  Receive Date: 20120213
  Receipt Date: 20120202
  Transmission Date: 20120608
  Serious: Yes (Hospitalization, Other)
  Sender: FDA-Public Use
  Company Number: US-ELI_LILLY_AND_COMPANY-US201103001698

PATIENT
  Sex: Female

DRUGS (4)
  1. FORTEO [Suspect]
     Indication: OSTEOPOROSIS
     Dosage: 20 UG, DAILY (1/D)
     Route: 065
     Dates: start: 20110201
  2. FORTEO [Suspect]
     Dosage: 20 UG, QD
     Route: 065
  3. CONTRAST MEDIA [Concomitant]
     Indication: SCAN
  4. FORTEO [Suspect]
     Dosage: 20 UG, QD

REACTIONS (19)
  - OVERDOSE [None]
  - DRUG ADMINISTRATION ERROR [None]
  - MALAISE [None]
  - GRIEF REACTION [None]
  - ACTIVITIES OF DAILY LIVING IMPAIRED [None]
  - OEDEMA PERIPHERAL [None]
  - SINUSITIS [None]
  - PYREXIA [None]
  - INFLUENZA [None]
  - DIARRHOEA [None]
  - BACK INJURY [None]
  - SOMNOLENCE [None]
  - DIZZINESS [None]
  - INJECTION SITE PAIN [None]
  - PAIN [None]
  - VOMITING [None]
  - NASOPHARYNGITIS [None]
  - ANXIETY [None]
  - NAUSEA [None]
